FAERS Safety Report 6359100-1 (Version None)
Quarter: 2009Q3

REPORT INFORMATION
  Report Type: 
  Country: None (occurrence: None)
  Receive Date: 20090917
  Receipt Date: 20070611
  Transmission Date: 20100115
  Serious: Yes (Other)
  Sender: FDA-Public Use
  Company Number: US-ASTRAZENECA-2006UW26248

PATIENT
  Age: 65 Year
  Sex: Female

DRUGS (15)
  1. SEROQUEL [Suspect]
     Indication: BIPOLAR DISORDER
     Dosage: 200-800 MG
     Route: 048
     Dates: start: 20030101, end: 20050101
  2. SEROQUEL [Suspect]
     Route: 048
     Dates: start: 20040101
  3. SEROQUEL [Suspect]
     Dosage: 600 -800 MG
     Route: 048
     Dates: start: 20060201
  4. CLOZARIL [Concomitant]
  5. HALDOL [Concomitant]
  6. RISPERDAL [Concomitant]
  7. THORAZINE [Concomitant]
  8. GLUCOPHAGE [Concomitant]
     Dosage: 500-2000 MG
     Dates: start: 20030101
  9. PAXIL [Concomitant]
     Dosage: 20-60 MG
     Dates: start: 20030101, end: 20050101
  10. KLONOPIN [Concomitant]
     Dates: start: 20030101, end: 20050101
  11. DEPAKOTE [Concomitant]
     Indication: BIPOLAR DISORDER
     Dosage: 600-1500 MG
     Dates: start: 20030101
  12. LANTUS [Concomitant]
     Dosage: 10 UNITS AT NIGHT
     Dates: start: 20060703
  13. REQUIP [Concomitant]
     Indication: RESTLESS LEGS SYNDROME
     Dates: start: 20070101
  14. DARVOCET [Concomitant]
     Dosage: PRN, BID
     Dates: start: 20070401
  15. NIZORAL [Concomitant]
     Dates: start: 20060703

REACTIONS (4)
  - DIABETES MELLITUS [None]
  - DIABETIC NEUROPATHY [None]
  - NEUROPATHY PERIPHERAL [None]
  - TYPE 2 DIABETES MELLITUS [None]
